FAERS Safety Report 20903469 (Version 1)
Quarter: 2022Q2

REPORT INFORMATION
  Report Type: Spontaneous
  Country: US (occurrence: US)
  Receive Date: 20220601
  Receipt Date: 20220601
  Transmission Date: 20220721
  Serious: Yes (Other)
  Sender: FDA-Public Use
  Company Number: US-GILEAD-2022-0583740

PATIENT
  Sex: Male

DRUGS (1)
  1. EMTRICITABINE [Suspect]
     Active Substance: EMTRICITABINE
     Indication: Prophylaxis against HIV infection
     Route: 065

REACTIONS (4)
  - Osteonecrosis [Unknown]
  - Spinal cord injury [Unknown]
  - Injury [Unknown]
  - Joint injury [Unknown]
